FAERS Safety Report 7706807-7 (Version None)
Quarter: 2011Q3

REPORT INFORMATION
  Report Type: 
  Country: None (occurrence: None)
  Receive Date: 20110818
  Receipt Date: 20110811
  Transmission Date: 20111222
  Serious: Yes (Other)
  Sender: FDA-Public Use
  Company Number: 2011SP038021

PATIENT
  Age: 38 Year
  Sex: Female

DRUGS (2)
  1. ESCITALOPRAM [Suspect]
     Indication: DEPRESSION
     Dosage: 20 MG, QD, PO
     Route: 048
     Dates: start: 20101101
  2. REMERON [Suspect]
     Indication: DEPRESSION
     Dosage: 15 MG, QD, PO
     Route: 048
     Dates: start: 20110708, end: 20110710

REACTIONS (10)
  - AFFECTIVE DISORDER [None]
  - ABDOMINAL PAIN [None]
  - DIARRHOEA [None]
  - MYOCLONUS [None]
  - DRUG INTERACTION [None]
  - INSOMNIA [None]
  - DRUG LEVEL DECREASED [None]
  - DELUSION [None]
  - IRRITABILITY [None]
  - TREMOR [None]
